FAERS Safety Report 16477283 (Version 1)
Quarter: 2019Q2

REPORT INFORMATION
  Report Type: Spontaneous
  Country: GB (occurrence: GB)
  Receive Date: 20190626
  Receipt Date: 20190626
  Transmission Date: 20190711
  Serious: Yes (Other)
  Sender: FDA-Public Use
  Company Number: GB-TEVA-2019-GB-1067205

PATIENT
  Age: 20 Year
  Sex: Female
  Weight: 66.67 kg

DRUGS (3)
  1. MERCILON [Concomitant]
     Active Substance: DESOGESTREL\ETHINYL ESTRADIOL
  2. FEXOFENADINE [Suspect]
     Active Substance: FEXOFENADINE\FEXOFENADINE HYDROCHLORIDE
     Indication: DERMATITIS ALLERGIC
     Dosage: 180 MILLIGRAMS
     Route: 048
     Dates: start: 20190424, end: 20190514
  3. AVAMYS [Concomitant]
     Active Substance: FLUTICASONE FUROATE

REACTIONS (3)
  - Anxiety [Recovered/Resolved]
  - Feeling drunk [Recovered/Resolved]
  - Amnesia [Recovered/Resolved]

NARRATIVE: CASE EVENT DATE: 20190424
